FAERS Safety Report 8026582-9 (Version None)
Quarter: 2012Q1

REPORT INFORMATION
  Report Type: 
  Country: None (occurrence: None)
  Receive Date: 20120106
  Receipt Date: 20111227
  Transmission Date: 20120608
  Serious: Yes (Hospitalization)
  Sender: FDA-Public Use
  Company Number: AR-BIOGENIDEC-2011BI048957

PATIENT
  Age: 33 Year
  Sex: Female
  Weight: 55 kg

DRUGS (8)
  1. ALPLAX (ALPRAZOLAM) [Concomitant]
     Route: 048
  2. PLENICA (PREGABALIN) [Concomitant]
     Route: 048
  3. DITROPAN (OXIBUTININ) [Concomitant]
  4. IBIPIRAC (IBIPROFEN) [Concomitant]
     Route: 048
  5. AVONEX [Suspect]
     Indication: MULTIPLE SCLEROSIS
     Route: 030
     Dates: start: 20090201
  6. LIORESAL [Concomitant]
     Route: 048
  7. VALIUM [Concomitant]
     Route: 048
  8. TANVIMIL (VITAMINS) [Concomitant]
     Route: 048

REACTIONS (4)
  - HAEMATOCRIT DECREASED [None]
  - FEMUR FRACTURE [None]
  - BRONCHITIS [None]
  - DEPRESSED MOOD [None]
